FAERS Safety Report 4408786-7 (Version None)
Quarter: 2004Q3

REPORT INFORMATION
  Report Type: 
  Country: None (occurrence: None)
  Receive Date: 20040727
  Receipt Date: 20040510
  Transmission Date: 20050211
  Serious: No
  Sender: FDA-Public Use
  Company Number: US-GLAXOSMITHKLINE-A0510215A

PATIENT
  Age: 54 Year
  Sex: Female
  Weight: 99.5 kg

DRUGS (9)
  1. LEXIVA [Suspect]
     Indication: HIV INFECTION
     Dosage: 1400MG TWICE PER DAY
     Route: 048
  2. ZERIT [Concomitant]
  3. VIDEX EC [Concomitant]
  4. ELAVIL [Concomitant]
  5. PROZAC [Concomitant]
  6. CELEBREX [Concomitant]
  7. EFFEXOR XR [Concomitant]
  8. ZESTORETIC [Concomitant]
  9. FLOVENT [Concomitant]

REACTIONS (1)
  - RASH MACULO-PAPULAR [None]
